FAERS Safety Report 16249936 (Version 2)
Quarter: 2019Q2

REPORT INFORMATION
  Report Type: Spontaneous
  Country: US (occurrence: US)
  Receive Date: 20190429
  Receipt Date: 20190506
  Transmission Date: 20190711
  Serious: Yes (Life-Threatening, Hospitalization, Other)
  Sender: FDA-Public Use
  Company Number: US-DRREDDYS-USA/USA/19/0109823

PATIENT
  Age: 53 Year
  Sex: Female

DRUGS (3)
  1. FUROSEMIDE. [Interacting]
     Active Substance: FUROSEMIDE
     Indication: POLYURIA
     Route: 042
  2. IVABRADINE [Interacting]
     Active Substance: IVABRADINE
     Indication: SINUS TACHYCARDIA
  3. METOPROLOL SUCCINATE. [Suspect]
     Active Substance: METOPROLOL SUCCINATE
     Indication: PRODUCT USED FOR UNKNOWN INDICATION
     Dosage: UPTITRATED

REACTIONS (2)
  - Drug interaction [Recovered/Resolved]
  - Torsade de pointes [Recovered/Resolved]
